FAERS Safety Report 5085877-1 (Version None)
Quarter: 2006Q3

REPORT INFORMATION
  Report Type: 
  Country: None (occurrence: None)
  Receive Date: 20060817
  Receipt Date: 20060814
  Transmission Date: 20061208
  Serious: Yes (Other)
  Sender: FDA-Public Use
  Company Number: HQWYE3488115AUG06

PATIENT
  Age: 3 Year
  Sex: Female
  Weight: 16.34 kg

DRUGS (6)
  1. LORATADINE [Suspect]
     Indication: EYE SWELLING
     Dosage: SEE IMAGE
     Route: 048
     Dates: start: 20050501, end: 20050101
  2. LORATADINE [Suspect]
     Indication: RHINORRHOEA
     Dosage: SEE IMAGE
     Route: 048
     Dates: start: 20050501, end: 20050101
  3. LORATADINE [Suspect]
     Indication: SNEEZING
     Dosage: SEE IMAGE
     Route: 048
     Dates: start: 20050501, end: 20050101
  4. LORATADINE [Suspect]
     Indication: EYE SWELLING
     Dosage: SEE IMAGE
     Route: 048
     Dates: start: 20050101
  5. LORATADINE [Suspect]
     Indication: RHINORRHOEA
     Dosage: SEE IMAGE
     Route: 048
     Dates: start: 20050101
  6. LORATADINE [Suspect]
     Indication: SNEEZING
     Dosage: SEE IMAGE
     Route: 048
     Dates: start: 20050101

REACTIONS (1)
  - GRAND MAL CONVULSION [None]
